FAERS Safety Report 6906971-3 (Version None)
Quarter: 2010Q3

REPORT INFORMATION
  Report Type: 
  Country: None (occurrence: None)
  Receive Date: 20100804
  Receipt Date: 20070619
  Transmission Date: 20110219
  Serious: Yes (Other)
  Sender: FDA-Public Use
  Company Number: PFIZER INC-2007050383

PATIENT
  Age: 63 Year
  Sex: Female
  Weight: 77.1 kg

DRUGS (17)
  1. CELEBREX [Suspect]
     Indication: INSOMNIA
     Dosage: FREQUENCY: HS
     Route: 048
     Dates: start: 20070426
  2. LUNESTA [Suspect]
  3. VIOXX [Suspect]
  4. ALL OTHER THERAPEUTIC PRODUCTS [Suspect]
  5. METFORMIN HCL [Concomitant]
  6. NEXIUM [Concomitant]
  7. LEXAPRO [Concomitant]
  8. KLONOPIN [Concomitant]
  9. CARAFATE [Concomitant]
  10. VALSARTAN [Concomitant]
  11. CARTIA XT [Concomitant]
  12. ZESTRIL [Concomitant]
  13. CRESTOR [Concomitant]
  14. TOPROL-XL [Concomitant]
  15. INSULIN [Concomitant]
  16. AMBIEN [Concomitant]
  17. TYLENOL PM [Concomitant]

REACTIONS (3)
  - DRUG INEFFECTIVE [None]
  - INSOMNIA [None]
  - ULCER HAEMORRHAGE [None]
